FAERS Safety Report 10151912 (Version 1)
Quarter: 2014Q2

REPORT INFORMATION
  Report Type: Report from Study
  Country: CA (occurrence: CA)
  Receive Date: 20140505
  Receipt Date: 20140505
  Transmission Date: 20141212
  Serious: Yes (Hospitalization)
  Sender: FDA-Public Use
  Company Number: CA-JNJFOC-20140419971

PATIENT
  Age: 71 Year
  Sex: Male
  Weight: 89 kg

DRUGS (14)
  1. REMICADE [Suspect]
     Indication: COLITIS ULCERATIVE
     Route: 042
     Dates: start: 20101108
  2. CIPRALEX [Concomitant]
     Route: 065
  3. SPIRIVA [Concomitant]
     Route: 065
  4. ALVESCO [Concomitant]
     Route: 065
  5. CRESTOR [Concomitant]
     Route: 065
  6. PANTOPRAZOLE [Concomitant]
     Route: 065
  7. EZETROL [Concomitant]
     Route: 065
  8. RAMIPRIL [Concomitant]
     Route: 065
  9. B12 [Concomitant]
     Route: 065
  10. ASA [Concomitant]
     Route: 065
  11. SALBUTAMOL [Concomitant]
     Route: 065
  12. ZOPICLONE [Concomitant]
     Route: 065
  13. PREDNISONE [Concomitant]
     Route: 065
  14. 5-ASA [Concomitant]
     Route: 065

REACTIONS (2)
  - Loss of consciousness [Unknown]
  - Pneumonia viral [Unknown]
